FAERS Safety Report 6999053-6 (Version None)
Quarter: 2010Q3

REPORT INFORMATION
  Report Type: 
  Country: None (occurrence: None)
  Receive Date: 20100920
  Receipt Date: 20100907
  Transmission Date: 20110219
  Serious: Yes (Hospitalization)
  Sender: FDA-Public Use
  Company Number: US-ELI_LILLY_AND_COMPANY-US201009004192

PATIENT
  Sex: Female

DRUGS (14)
  1. FORTEO [Suspect]
     Indication: OSTEOPOROSIS
     Dosage: 20 UG, DAILY (1/D)
     Route: 058
  2. ACTOS [Concomitant]
  3. DOXEPIN HCL [Concomitant]
  4. METFORMIN [Concomitant]
  5. PROGESTERONE [Concomitant]
  6. VYTORIN [Concomitant]
  7. BENAZEPRIL W/HYDROCHLOROTHIAZIDE [Concomitant]
  8. AZATHIOPRINE [Concomitant]
  9. LENOXIN [Concomitant]
  10. NEXIUM [Concomitant]
  11. HORMONES [Concomitant]
     Route: 061
  12. CELEBREX [Concomitant]
     Dosage: UNK, AS NEEDED
  13. CARISOPRODOL [Concomitant]
     Dosage: UNK, AS NEEDED
  14. DARVOCET [Concomitant]
     Dosage: UNK, AS NEEDED

REACTIONS (8)
  - ABASIA [None]
  - CEREBROVASCULAR ACCIDENT [None]
  - FALL [None]
  - GAIT DISTURBANCE [None]
  - PLEURISY [None]
  - PNEUMONIA [None]
  - PYREXIA [None]
  - URINARY TRACT INFECTION [None]
